FAERS Safety Report 7068135-5 (Version None)
Quarter: 2010Q4

REPORT INFORMATION
  Report Type: 
  Country: None (occurrence: None)
  Receive Date: 20101028
  Receipt Date: 20101020
  Transmission Date: 20110411
  Serious: Yes (Hospitalization)
  Sender: FDA-Public Use
  Company Number: PHHO2010GB15967

PATIENT
  Sex: Female

DRUGS (8)
  1. AFINITOR [Suspect]
     Indication: ACUTE MYELOID LEUKAEMIA
     Dosage: UNK
     Route: 048
     Dates: start: 20100907, end: 20101009
  2. ARA-C [Concomitant]
  3. DAUNORUBICIN HCL [Concomitant]
     Dosage: UNK
  4. ITRACONAZOLE [Concomitant]
  5. ACICLOVIR [Concomitant]
  6. NORETHISTERONE [Concomitant]
  7. ZOPICLONE [Concomitant]
  8. SANDO K [Concomitant]

REACTIONS (2)
  - BLOOD CREATINE PHOSPHOKINASE INCREASED [None]
  - HYPOKALAEMIA [None]
